FAERS Safety Report 7571980-0 (Version None)
Quarter: 2011Q2

REPORT INFORMATION
  Report Type: 
  Country: None (occurrence: None)
  Receive Date: 20110620
  Receipt Date: 20110606
  Transmission Date: 20111010
  Serious: Yes (Hospitalization, Other)
  Sender: FDA-Public Use
  Company Number: 2011P1007003

PATIENT
  Age: 60 Year
  Sex: Female
  Weight: 127.0072 kg

DRUGS (15)
  1. THYROID MEDICATION [Concomitant]
  2. POTASSIUM [Concomitant]
  3. ROCOTROL [Concomitant]
  4. LYRICA [Concomitant]
  5. CALCIUM CARBONATE [Concomitant]
  6. FENTANYL CITRATE [Suspect]
     Indication: PAIN
     Dosage: 1 PATCH; Q72HR; TDER
     Route: 062
     Dates: start: 20090101
  7. FENTANYL CITRATE [Suspect]
     Indication: KNEE ARTHROPLASTY
     Dosage: 1 PATCH; Q72HR; TDER
     Route: 062
     Dates: start: 20090101
  8. FENTANYL CITRATE [Suspect]
     Indication: OSTEOARTHRITIS
     Dosage: 1 PATCH; Q72HR; TDER
     Route: 062
     Dates: start: 20090101
  9. FENTANYL CITRATE [Suspect]
     Indication: ARTHRITIS
     Dosage: 1 PATCH; Q72HR; TDER
     Route: 062
     Dates: start: 20090101
  10. FENTANYL CITRATE [Suspect]
     Indication: FIBROMYALGIA
     Dosage: 1 PATCH; Q72HR; TDER
     Route: 062
     Dates: start: 20090101
  11. VALIUM [Concomitant]
  12. ROXICODONE [Concomitant]
  13. FLUTICASONE PROPIONATE [Concomitant]
  14. AMITRIPTYLINE HCL [Concomitant]
  15. IMITREX [Concomitant]

REACTIONS (7)
  - WHEEZING [None]
  - THROAT TIGHTNESS [None]
  - HYPOTHYROIDISM [None]
  - DYSPNOEA [None]
  - APPLICATION SITE PRURITUS [None]
  - PNEUMONIA [None]
  - FATIGUE [None]
